FAERS Safety Report 4659484-6 (Version None)
Quarter: 2005Q2

REPORT INFORMATION
  Report Type: 
  Country: None (occurrence: None)
  Receive Date: 20050505
  Receipt Date: 20050421
  Transmission Date: 20051028
  Serious: Yes (Hospitalization, Other)
  Sender: FDA-Public Use
  Company Number: 603457

PATIENT
  Age: 49 Year
  Sex: Male

DRUGS (1)
  1. ADVATE (ANTIHEMOPHILIC FACTOR (RECOMBINANT), PLASMA/ ALBUMIN FREE METH [Suspect]
     Indication: FACTOR VIII DEFICIENCY
     Dosage: 67000 IU; PRN
     Dates: start: 20050329, end: 20050408

REACTIONS (3)
  - FACTOR VIII INHIBITION [None]
  - HAEMARTHROSIS [None]
  - HAEMORRHAGE [None]
